FAERS Safety Report 5815444-0 (Version None)
Quarter: 2008Q3

REPORT INFORMATION
  Report Type: 
  Country: None (occurrence: None)
  Receive Date: 20080718
  Receipt Date: 20080708
  Transmission Date: 20090109
  Serious: Yes (Hospitalization, Disabling, Other)
  Sender: FDA-Public Use
  Company Number: US-PFIZER INC-2008056588

PATIENT
  Age: 64 Year
  Sex: Male

DRUGS (3)
  1. ARTHROTEC [Suspect]
     Indication: ARTHRITIS
  2. INSULIN [Concomitant]
  3. DRUG, UNSPECIFIED [Concomitant]

REACTIONS (12)
  - ANOREXIA [None]
  - ASTHENIA [None]
  - BLOOD GLUCOSE INCREASED [None]
  - DEHYDRATION [None]
  - DIARRHOEA [None]
  - INFLUENZA LIKE ILLNESS [None]
  - INTERSTITIAL LUNG DISEASE [None]
  - NEPHRITIS INTERSTITIAL [None]
  - PARKINSON'S DISEASE [None]
  - PLEURAL EFFUSION [None]
  - RASH [None]
  - RENAL FAILURE ACUTE [None]
